FAERS Safety Report 14815473 (Version 1)
Quarter: 2018Q2

REPORT INFORMATION
  Report Type: Spontaneous
  Country: US (occurrence: US)
  Receive Date: 20180426
  Receipt Date: 20180426
  Transmission Date: 20180711
  Serious: Yes (Death, Other)
  Sender: FDA-Public Use
  Company Number: US-009507513-1804USA009975

PATIENT
  Age: 69 Year
  Sex: Male

DRUGS (3)
  1. SINEMET [Suspect]
     Active Substance: CARBIDOPA\LEVODOPA
     Route: 048
  2. LEVODOPA [Suspect]
     Active Substance: LEVODOPA
  3. CARBIDOPA. [Suspect]
     Active Substance: CARBIDOPA

REACTIONS (1)
  - Parkinson^s disease [Fatal]
